FAERS Safety Report 7707195-2 (Version None)
Quarter: 2011Q3

REPORT INFORMATION
  Report Type: 
  Country: None (occurrence: None)
  Receive Date: 20110824
  Receipt Date: 20110809
  Transmission Date: 20111222
  Serious: Yes (Other)
  Sender: FDA-Public Use
  Company Number: PHHY2011CA72697

PATIENT
  Sex: Female

DRUGS (2)
  1. TEGRETOL [Suspect]
  2. CLOZAPINE [Suspect]
     Dates: start: 20110502

REACTIONS (6)
  - INFECTION [None]
  - URINARY INCONTINENCE [None]
  - WHITE BLOOD CELL COUNT DECREASED [None]
  - PAIN [None]
  - VEIN PAIN [None]
  - URINARY BLADDER ATROPHY [None]
